FAERS Safety Report 15100568 (Version 2)
Quarter: 2018Q3

REPORT INFORMATION
  Report Type: Report from Study
  Country: US (occurrence: US)
  Receive Date: 20180703
  Receipt Date: 20180806
  Transmission Date: 20181010
  Serious: Yes (Other)
  Sender: FDA-Public Use
  Company Number: US-AMGEN-USASL2018086542

PATIENT
  Age: 69 Year
  Sex: Female

DRUGS (1)
  1. REPATHA [Suspect]
     Active Substance: EVOLOCUMAB
     Indication: HYPERLIPIDAEMIA
     Dosage: 140 MG, Q2WK
     Route: 065
     Dates: start: 20180615

REACTIONS (9)
  - Cough [Unknown]
  - Vulvovaginal pruritus [Unknown]
  - Pain [Unknown]
  - Sneezing [Unknown]
  - Rhinorrhoea [Unknown]
  - Vulvovaginal burning sensation [Unknown]
  - Gastrointestinal disorder [Unknown]
  - Dizziness [Unknown]
  - Pruritus generalised [Recovered/Resolved]

NARRATIVE: CASE EVENT DATE: 201806
